FAERS Safety Report 5588592-0 (Version None)
Quarter: 2007Q4

REPORT INFORMATION
  Report Type: 
  Country: None (occurrence: None)
  Receive Date: 20071212
  Receipt Date: 20071105
  Transmission Date: 20080405
  Serious: No
  Sender: FDA-Public Use
  Company Number: 2007RL000503

PATIENT
  Sex: Female

DRUGS (2)
  1. LOVAZA [Suspect]
     Indication: DRUG USE FOR UNKNOWN INDICATION
     Dosage: 2 GM;PO ; 4 GM;PO
     Route: 048
  2. ZETIA [Concomitant]

REACTIONS (2)
  - GINGIVAL PAIN [None]
  - GINGIVAL SWELLING [None]
